FAERS Safety Report 7083941-9 (Version None)
Quarter: 2010Q4

REPORT INFORMATION
  Report Type: 
  Country: None (occurrence: None)
  Receive Date: 20101104
  Receipt Date: 20100423
  Transmission Date: 20110411
  Serious: No
  Sender: FDA-Public Use
  Company Number: US-ABBOTT-10P-163-0641389-00

PATIENT

DRUGS (5)
  1. KALETRA [Suspect]
     Indication: HIV INFECTION
     Dosage: 2 TABLETS, TWICE DAILY
     Dates: start: 20100201
  2. UNKNOWN MEDICATIONS [Concomitant]
     Indication: SCHIZOAFFECTIVE DISORDER
  3. UNKNOWN MEDICATIONS [Concomitant]
     Indication: BORDERLINE PERSONALITY DISORDER
  4. UNKNOWN MEDICATIONS [Concomitant]
     Indication: HIV INFECTION
  5. GREEN TEA [Concomitant]
     Indication: ANTIOXIDANT THERAPY

REACTIONS (1)
  - BLOOD CHOLESTEROL INCREASED [None]
